FAERS Safety Report 20810143 (Version 1)
Quarter: 2022Q2

REPORT INFORMATION
  Report Type: Spontaneous
  Country: US (occurrence: US)
  Receive Date: 20220510
  Receipt Date: 20220510
  Transmission Date: 20220721
  Serious: No
  Sender: FDA-Public Use
  Company Number: US-OYSTER POINT PHARMA, INC.-2022OYS00163

PATIENT
  Sex: Female

DRUGS (8)
  1. TYRVAYA [Suspect]
     Active Substance: VARENICLINE TARTRATE
     Indication: Dry eye
     Dosage: 1 SPRAY IN EACH NOSTRIL, 2X/DAY (12 HOURS APART)
     Route: 045
     Dates: start: 20220218
  2. RESTASIS [Concomitant]
     Active Substance: CYCLOSPORINE
     Dosage: UNK, 2X/DAY
  3. EYSUVIS [Concomitant]
     Active Substance: LOTEPREDNOL ETABONATE
     Dosage: 1 DROP, EACH EYE, 4X/DAY
     Route: 047
  4. REFRESH ADVANCED [Concomitant]
     Dosage: 1 OR 2 DROPS IN EACH EYE
     Route: 047
  5. REFRESH ADVANCED [Concomitant]
     Dosage: 1 OR 2 DROPS IN EACH EYE
     Route: 047
  6. METFORMIN [Concomitant]
     Active Substance: METFORMIN HYDROCHLORIDE
  7. RAMIPRIL [Concomitant]
     Active Substance: RAMIPRIL
     Dosage: UNK, 1X/DAY IN THE MORNING
  8. AMLODIPINE [Concomitant]
     Active Substance: AMLODIPINE BESYLATE
     Dosage: UNK, 1X/DAY IN THE EVENING

REACTIONS (6)
  - Drug ineffective [Not Recovered/Not Resolved]
  - Epistaxis [Unknown]
  - Product physical consistency issue [Recovered/Resolved]
  - Cough [Recovered/Resolved]
  - Nasal discomfort [Recovered/Resolved]
  - Throat irritation [Unknown]

NARRATIVE: CASE EVENT DATE: 20220201
